FAERS Safety Report 24569780 (Version 2)
Quarter: 2025Q2

REPORT INFORMATION
  Report Type: Spontaneous
  Country: CA (occurrence: CA)
  Receive Date: 20241031
  Receipt Date: 20250514
  Transmission Date: 20250717
  Serious: Yes (Other)
  Sender: PFIZER
  Company Number: CA-PFIZER INC-202400290721

PATIENT
  Age: 5 Year
  Sex: Male

DRUGS (4)
  1. METHOTREXATE SODIUM [Suspect]
     Active Substance: METHOTREXATE SODIUM
     Indication: Uveitis
     Dosage: 20 MG, WEEKLY
     Route: 048
     Dates: start: 2022
  2. ABRILADA [Concomitant]
     Active Substance: ADALIMUMAB-AFZB
     Indication: Uveitis
     Route: 058
     Dates: start: 20241107
  3. ABRILADA [Concomitant]
     Active Substance: ADALIMUMAB-AFZB
     Route: 058
     Dates: start: 20250312
  4. ABRILADA [Concomitant]
     Active Substance: ADALIMUMAB-AFZB
     Route: 058
     Dates: start: 20250509

REACTIONS (3)
  - Condition aggravated [Unknown]
  - Off label use [Unknown]
  - Off label use [Unknown]

NARRATIVE: CASE EVENT DATE: 20220101
